FAERS Safety Report 19199930 (Version 1)
Quarter: 2021Q2

REPORT INFORMATION
  Report Type: Spontaneous
  Country: CA (occurrence: CA)
  Receive Date: 20210430
  Receipt Date: 20210430
  Transmission Date: 20210717
  Serious: Yes (Hospitalization)
  Sender: FDA-Public Use
  Company Number: CA-TEVA-2021-CA-1905229

PATIENT
  Age: 74 Year
  Sex: Male

DRUGS (1)
  1. CARBOPLATIN INJECTION [Suspect]
     Active Substance: CARBOPLATIN
     Route: 065

REACTIONS (1)
  - Febrile neutropenia [Unknown]
